FAERS Safety Report 8821067 (Version 2)
Quarter: 2012Q4

REPORT INFORMATION
  Report Type: 
  Country: US (occurrence: US)
  Receive Date: 20121002
  Receipt Date: 20121004
  Transmission Date: 20130627
  Serious: Yes (Hospitalization, Other)
  Sender: FDA-Public Use
  Company Number: US-009507513-2011SP048222

PATIENT

DRUGS (3)
  1. NUVARING [Suspect]
     Indication: CONTRACEPTION
     Dosage: UNK
     Dates: start: 20071214, end: 20091031
  2. HERBS (UNSPECIFIED) [Concomitant]
     Indication: GENERAL PHYSICAL CONDITION
     Dosage: LAXATIVE
  3. VITAMINS (UNSPECIFIED) [Concomitant]
     Indication: GENERAL PHYSICAL CONDITION
     Dosage: 1 DF, QD

REACTIONS (7)
  - Cerebrovascular accident [Recovered/Resolved]
  - Hyperlipidaemia [Unknown]
  - Presyncope [Unknown]
  - Hypertension [Unknown]
  - Abdominal pain [Unknown]
  - Candidiasis [Unknown]
  - Palpitations [Recovered/Resolved]
